FAERS Safety Report 5374486-2 (Version None)
Quarter: 2007Q2

REPORT INFORMATION
  Report Type: 
  Country: None (occurrence: None)
  Receive Date: 20070629
  Receipt Date: 20070622
  Transmission Date: 20071010
  Serious: Yes (Other)
  Sender: FDA-Public Use
  Company Number: JP-JNJFOC-20070605575

PATIENT
  Age: 48 Year
  Sex: Male

DRUGS (2)
  1. ITRACONAZOLE [Suspect]
     Indication: CANDIDIASIS
     Route: 042
  2. ITRACONAZOLE [Suspect]
     Route: 036

REACTIONS (1)
  - BLOOD PRESSURE DECREASED [None]
